FAERS Safety Report 8561453-0 (Version None)
Quarter: 2012Q3

REPORT INFORMATION
  Report Type: 
  Country: None (occurrence: None)
  Receive Date: 20120802
  Receipt Date: 20120731
  Transmission Date: 20120928
  Serious: Yes (Hospitalization)
  Sender: FDA-Public Use
  Company Number: FR-GLAXOSMITHKLINE-B0819402A

PATIENT
  Sex: Female

DRUGS (5)
  1. CLAFORAN [Concomitant]
     Dosage: 16G PER DAY
     Dates: start: 20120210, end: 20120216
  2. ZOVIRAX [Suspect]
     Indication: ENCEPHALITIS
     Dosage: 600MG THREE TIMES PER DAY
     Route: 042
     Dates: start: 20120210, end: 20120220
  3. FLAGYL [Concomitant]
     Dosage: 1.5G PER DAY
     Dates: start: 20120210, end: 20120213
  4. AMOXICILLIN TRIHYDRATE [Suspect]
     Indication: PNEUMONIA KLEBSIELLA
     Dosage: 3G FOUR TIMES PER DAY
     Route: 042
     Dates: start: 20120210, end: 20120220
  5. INSULINE [Concomitant]
     Indication: TYPE 1 DIABETES MELLITUS

REACTIONS (1)
  - RENAL FAILURE ACUTE [None]
